FAERS Safety Report 8736948 (Version 3)
Quarter: 2013Q1

REPORT INFORMATION
  Report Type: Spontaneous
  Country: DE (occurrence: CA)
  Receive Date: 20120822
  Receipt Date: 20130301
  Transmission Date: 20140127
  Serious: Yes (Hospitalization)
  Sender: FDA-Public Use
  Company Number: CA-FRI-1000038093

PATIENT
  Age: 66 None
  Sex: Male

DRUGS (5)
  1. ROFLUMILAST [Suspect]
     Dosage: 500 MCG
     Route: 048
     Dates: start: 20120525
  2. CORTISONE [Concomitant]
     Dates: start: 20121124, end: 20121128
  3. CORTISONE [Concomitant]
     Dates: start: 20121129, end: 20121203
  4. AVELOX [Concomitant]
     Dates: start: 20121124, end: 20121203
  5. PREDNISONE [Concomitant]

REACTIONS (9)
  - Nephrolithiasis [Unknown]
  - Blindness transient [Unknown]
  - Convulsion [Unknown]
  - Helicobacter infection [Unknown]
  - Wheezing [Unknown]
  - Dyspnoea [Unknown]
  - Increased upper airway secretion [Unknown]
  - Influenza [Recovered/Resolved]
  - Gastrointestinal bacterial infection [Unknown]
